FAERS Safety Report 4648367-3 (Version None)
Quarter: 2005Q2

REPORT INFORMATION
  Report Type: 
  Country: None (occurrence: None)
  Receive Date: 20050427
  Receipt Date: 20050413
  Transmission Date: 20051028
  Serious: Yes (Life-Threatening)
  Sender: FDA-Public Use
  Company Number: EWC050242869

PATIENT
  Sex: Male
  Weight: 60 kg

DRUGS (17)
  1. XIGRIS [Suspect]
     Indication: MULTI-ORGAN FAILURE
     Dosage: 24 UG/KG/HR
     Dates: start: 20040902, end: 20040907
  2. XIGRIS [Suspect]
     Indication: SEPSIS
     Dosage: 24 UG/KG/HR
     Dates: start: 20040902, end: 20040907
  3. MERONEM (MEROPENEM) [Concomitant]
  4. LEVONOR (NOREPINEPHRINE BITARTRATE) [Concomitant]
  5. DOBUTREX [Concomitant]
  6. DOPAMINE HCL [Concomitant]
  7. DOLARGAN (PETHIDINE HYDROCHLORIDE) [Concomitant]
  8. DORMICUM (MIDAZOLAM MALEATE) [Concomitant]
  9. GAMMARGARD (IMMUNOGLOBULIN HUMAN NORMAL) [Concomitant]
  10. FUROSEMIDE [Concomitant]
  11. ACC (ACETYLCYSTEINE M/G) [Concomitant]
  12. ZANTAC [Concomitant]
  13. ALBUMIN (HUMAN) [Concomitant]
  14. INSULINUM MAXIRAPID  CHO-S  (INSULIN) [Concomitant]
  15. HYDROCORTISONE [Concomitant]
  16. METOCLOPRAMIDE [Concomitant]
  17. ENOXAPARIN SODIUM [Concomitant]

REACTIONS (4)
  - ACTIVATED PARTIAL THROMBOPLASTIN TIME PROLONGED [None]
  - COAGULOPATHY [None]
  - INTERNATIONAL NORMALISED RATIO DECREASED [None]
  - RESPIRATORY TRACT HAEMORRHAGE [None]
